FAERS Safety Report 11467166 (Version 2)
Quarter: 2015Q3

REPORT INFORMATION
  Report Type: Spontaneous
  Country: US (occurrence: US)
  Receive Date: 20150908
  Receipt Date: 20150909
  Transmission Date: 20151125
  Serious: No
  Sender: FDA-Public Use
  Company Number: US-BRISTOL-MYERS SQUIBB COMPANY-BMS-2015-059362

PATIENT
  Sex: Female

DRUGS (1)
  1. ERBITUX [Suspect]
     Active Substance: CETUXIMAB
     Indication: NON-SMALL CELL LUNG CANCER
     Dosage: 720 MG, UNK
     Route: 042
     Dates: start: 20150807

REACTIONS (2)
  - Dry skin [Unknown]
  - Skin fissures [Unknown]
